FAERS Safety Report 21881466 (Version 1)
Quarter: 2023Q1

REPORT INFORMATION
  Report Type: Spontaneous
  Country: US (occurrence: US)
  Receive Date: 20230119
  Receipt Date: 20230119
  Transmission Date: 20230417
  Serious: No
  Sender: FDA-Public Use
  Company Number: US-SA-SAC20230118000761

PATIENT
  Age: 67 Year
  Sex: Female
  Weight: 95 kg

DRUGS (6)
  1. DUPIXENT [Suspect]
     Active Substance: DUPILUMAB
     Indication: Asthma
     Dosage: 300 MG, QOW
     Route: 058
     Dates: start: 20220526
  2. DUPIXENT [Suspect]
     Active Substance: DUPILUMAB
     Indication: Osteoarthritis
  3. SPIRIVA RESPIMAT [Concomitant]
     Active Substance: TIOTROPIUM BROMIDE
  4. SYNTHROID [Concomitant]
     Active Substance: LEVOTHYROXINE SODIUM
  5. LISINOPRIL [Concomitant]
     Active Substance: LISINOPRIL
  6. PROCARDIA [Concomitant]
     Active Substance: NIFEDIPINE

REACTIONS (1)
  - Product use in unapproved indication [Unknown]

NARRATIVE: CASE EVENT DATE: 20220526
